FAERS Safety Report 4368728-X (Version None)
Quarter: 2004Q2

REPORT INFORMATION
  Report Type: 
  Country: None (occurrence: None)
  Receive Date: 20040528
  Receipt Date: 20040514
  Transmission Date: 20050107
  Serious: Yes (Disabling)
  Sender: FDA-Public Use
  Company Number: 04P-013-0246512-00

PATIENT
  Age: 66 Year
  Sex: Male
  Weight: 113.2 kg

DRUGS (6)
  1. MERIDIA [Suspect]
     Indication: OBESITY
     Dosage: 10 MG, 1 IN 1 D, ORAL
     Route: 048
     Dates: start: 20030917
  2. GLUCOPHAGE [Concomitant]
  3. ZOCOR [Concomitant]
  4. IRBESARTAN [Concomitant]
  5. METOPROLOL SUCCINATE [Concomitant]
  6. ASPIRIN [Concomitant]

REACTIONS (4)
  - DIABETIC MICROANGIOPATHY [None]
  - DIABETIC NEUROPATHY [None]
  - DIPLOPIA [None]
  - VITH NERVE PARALYSIS [None]
